FAERS Safety Report 5525504-X (Version None)
Quarter: 2007Q4

REPORT INFORMATION
  Report Type: 
  Country: None (occurrence: None)
  Receive Date: 20071126
  Receipt Date: 20071112
  Transmission Date: 20080405
  Serious: Yes (Hospitalization)
  Sender: FDA-Public Use
  Company Number: KR-GENENTECH-251078

PATIENT
  Sex: Male
  Weight: 43.991 kg

DRUGS (7)
  1. TRASTUZUMAB [Suspect]
     Indication: GASTRIC CANCER
     Dosage: 8 MG/KG, Q3W
     Route: 042
     Dates: start: 20071003
  2. CAPECITABINE [Suspect]
     Indication: GASTRIC CANCER
     Dosage: 1000 MG/M2, BID
     Route: 048
     Dates: start: 20071003
  3. CISPLATIN [Suspect]
     Indication: GASTRIC CANCER
     Dosage: 80 MG/M2, Q3W
     Route: 042
     Dates: start: 20071003
  4. OXYCONTIN [Concomitant]
     Indication: DRUG USE FOR UNKNOWN INDICATION
     Dates: start: 20071023, end: 20071028
  5. FURIX [Concomitant]
     Indication: DRUG USE FOR UNKNOWN INDICATION
     Dates: start: 20071028, end: 20071028
  6. ADALAT [Concomitant]
     Indication: DRUG USE FOR UNKNOWN INDICATION
     Dosage: UNK, UNK
     Dates: start: 20071024, end: 20071024
  7. MOSAPRIDE CITRATE [Concomitant]
     Indication: DRUG USE FOR UNKNOWN INDICATION
     Dates: start: 20071027, end: 20071028

REACTIONS (4)
  - ABDOMINAL PAIN [None]
  - DIARRHOEA [None]
  - OESOPHAGEAL CANDIDIASIS [None]
  - PNEUMONIA [None]
